FAERS Safety Report 4625044-6 (Version None)
Quarter: 2005Q2

REPORT INFORMATION
  Report Type: 
  Country: None (occurrence: None)
  Receive Date: 20050401
  Receipt Date: 20050321
  Transmission Date: 20051028
  Serious: Yes (Other)
  Sender: FDA-Public Use
  Company Number: US-BRISTOL-MYERS SQUIBB COMPANY-12904843

PATIENT
  Age: 55 Year
  Sex: Male

DRUGS (4)
  1. PRAVASTATIN SODIUM [Suspect]
  2. ATORVASTATIN CALCIUM [Suspect]
  3. LOVASTATIN [Suspect]
  4. SIMVASTATIN [Suspect]

REACTIONS (1)
  - MYASTHENIA GRAVIS [None]
